FAERS Safety Report 5714247-5 (Version None)
Quarter: 2008Q2

REPORT INFORMATION
  Report Type: 
  Country: None (occurrence: None)
  Receive Date: 20080422
  Receipt Date: 20080422
  Transmission Date: 20081010
  Serious: No
  Sender: FDA-Public Use
  Company Number: None

PATIENT
  Age: 57 Year
  Sex: Male
  Weight: 84.37 kg

DRUGS (3)
  1. WARFARIN SODIUM [Suspect]
     Indication: MYELOPROLIFERATIVE DISORDER
     Dosage: 22.5 MG QWEEK PO
     Route: 048
     Dates: start: 19961001
  2. WARFARIN SODIUM [Suspect]
     Indication: PORTAL HYPERTENSION
     Dosage: 22.5 MG QWEEK PO
     Route: 048
     Dates: start: 19961001
  3. WARFARIN SODIUM [Suspect]
     Indication: PORTAL VEIN THROMBOSIS
     Dosage: 22.5 MG QWEEK PO
     Route: 048
     Dates: start: 19961001

REACTIONS (5)
  - DEEP VEIN THROMBOSIS [None]
  - GASTRIC HAEMORRHAGE [None]
  - HAEMORRHAGE [None]
  - INTERNATIONAL NORMALISED RATIO INCREASED [None]
  - PORTAL HYPERTENSION [None]
